FAERS Safety Report 5596287-2 (Version None)
Quarter: 2007Q4

REPORT INFORMATION
  Report Type: 
  Country: None (occurrence: None)
  Receive Date: 20071218
  Receipt Date: 20070110
  Transmission Date: 20080405
  Serious: Yes (Other)
  Sender: FDA-Public Use
  Company Number: 2006032154

PATIENT
  Age: 52 Year
  Sex: Male
  Weight: 109.8 kg

DRUGS (1)
  1. BEXTRA [Suspect]
     Indication: BACK PAIN
     Dosage: 20 MG (10 MG,2 IN 1 D),ORAL
     Route: 048
     Dates: start: 20040901, end: 20041201

REACTIONS (1)
  - MYOCARDIAL INFARCTION [None]
